FAERS Safety Report 4477301-4 (Version None)
Quarter: 2004Q4

REPORT INFORMATION
  Report Type: 
  Country: None (occurrence: None)
  Receive Date: 20041013
  Receipt Date: 20041004
  Transmission Date: 20050328
  Serious: Yes (Hospitalization)
  Sender: FDA-Public Use
  Company Number: 805#1#2004-00025

PATIENT
  Age: 1 Year
  Sex: Female

DRUGS (1)
  1. ALPROSTADIL [Suspect]
     Indication: FALLOT'S TETRALOGY
     Route: 041
     Dates: start: 20040809, end: 20040827

REACTIONS (3)
  - INFLAMMATION [None]
  - PYREXIA [None]
  - RASH [None]
